FAERS Safety Report 9013019 (Version 2)
Quarter: 2013Q2

REPORT INFORMATION
  Report Type: Spontaneous
  Country: BR (occurrence: BR)
  Receive Date: 20130114
  Receipt Date: 20130503
  Transmission Date: 20140414
  Serious: Yes (Hospitalization, Other)
  Sender: FDA-Public Use
  Company Number: BR-AMGEN-BRASP2012077841

PATIENT
  Age: 59 Year
  Sex: Female
  Weight: 59 kg

DRUGS (5)
  1. ENBREL [Suspect]
     Indication: RHEUMATOID ARTHRITIS
     Dosage: 50 MG, WEEKLY
     Dates: start: 200908, end: 201205
  2. ENBREL [Suspect]
     Dosage: UNK MG, QWK
  3. ENBREL [Suspect]
     Dosage: 50 MG, QWK
     Route: 058
     Dates: start: 201205, end: 20121110
  4. LIBIAN [Concomitant]
     Indication: HORMONE THERAPY
     Dosage: 1.25 MG, UNK
  5. OSCAL D                            /00944201/ [Concomitant]
     Indication: OSTEOPOROSIS
     Dosage: 400 MG, UNK

REACTIONS (6)
  - Immunosuppression [Unknown]
  - Urinary tract infection bacterial [Unknown]
  - Pneumonia bacterial [Unknown]
  - Hypersensitivity [Not Recovered/Not Resolved]
  - Injection site mass [Not Recovered/Not Resolved]
  - Injection site erythema [Not Recovered/Not Resolved]
